FAERS Safety Report 5278354-6 (Version None)
Quarter: 2007Q1

REPORT INFORMATION
  Report Type: 
  Country: None (occurrence: None)
  Receive Date: 20070328
  Receipt Date: 20070319
  Transmission Date: 20070707
  Serious: Yes (Other)
  Sender: FDA-Public Use
  Company Number: JP-BAYER-200710168BYL

PATIENT
  Age: 77 Year
  Sex: Male
  Weight: 45 kg

DRUGS (9)
  1. AVELOX [Suspect]
     Indication: BRONCHITIS
     Dosage: TOTAL DAILY DOSE: 400 MG  UNIT DOSE: 400 MG
     Route: 048
     Dates: start: 20070301, end: 20070301
  2. SPIRIVA [Concomitant]
     Indication: CHRONIC OBSTRUCTIVE PULMONARY DISEASE
     Dosage: TOTAL DAILY DOSE: 18 ?G  UNIT DOSE: 18 ?G
     Route: 055
     Dates: start: 20050310
  3. DEPAS [Concomitant]
     Indication: PSYCHOSOMATIC DISEASE
     Dosage: TOTAL DAILY DOSE: 1.5 MG  UNIT DOSE: 0.5 MG
     Route: 048
     Dates: start: 20011129
  4. MUCODYNE [Concomitant]
     Indication: BRONCHITIS
     Dosage: TOTAL DAILY DOSE: 1500 MG  UNIT DOSE: 500 MG
     Route: 048
     Dates: start: 20070301, end: 20070301
  5. CYANOCOBALAMIN [Concomitant]
     Indication: NEUROPATHY PERIPHERAL
     Dosage: TOTAL DAILY DOSE: 1500 MG  UNIT DOSE: 500 MG
     Route: 048
     Dates: start: 20010222
  6. CLEANAL [Concomitant]
     Indication: BRONCHITIS
     Dosage: TOTAL DAILY DOSE: 1200 MG  UNIT DOSE: 200 MG
     Route: 048
     Dates: start: 20070301, end: 20070301
  7. PL [Concomitant]
     Indication: NASOPHARYNGITIS
     Dosage: TOTAL DAILY DOSE: 3 G  UNIT DOSE: 1 G
     Route: 048
     Dates: start: 20070301, end: 20070301
  8. TAMIFLU [Concomitant]
     Indication: NEUROPATHY PERIPHERAL
     Dosage: TOTAL DAILY DOSE: 150 MG  UNIT DOSE: 75 MG
     Route: 048
     Dates: start: 20070301, end: 20070306
  9. UNASYN [Concomitant]
     Indication: BRONCHITIS
     Dosage: TOTAL DAILY DOSE: 3 G  UNIT DOSE: 1.5 G
     Route: 042
     Dates: start: 20070301, end: 20070305

REACTIONS (2)
  - BLOOD CREATINE PHOSPHOKINASE INCREASED [None]
  - MYOPATHY [None]
